FAERS Safety Report 10307592 (Version 1)
Quarter: 2014Q3

REPORT INFORMATION
  Report Type: Spontaneous
  Country: JP (occurrence: JP)
  Receive Date: 20140716
  Receipt Date: 20140716
  Transmission Date: 20150326
  Serious: Yes (Other)
  Sender: FDA-Public Use
  Company Number: PHHY2012JP132364

PATIENT
  Age: 70 Year
  Sex: Male

DRUGS (1)
  1. GLIVEC [Suspect]
     Active Substance: IMATINIB MESYLATE
     Indication: GASTROINTESTINAL STROMAL TUMOUR
     Dosage: 300 MG, UNK

REACTIONS (6)
  - Vomiting [Unknown]
  - Oedema [Unknown]
  - Diarrhoea [Unknown]
  - Metastasis [Unknown]
  - Nausea [Unknown]
  - Lymphadenopathy [Unknown]
